APPROVED DRUG PRODUCT: LIDOCAINE
Active Ingredient: LIDOCAINE
Strength: 5%
Dosage Form/Route: PATCH;TOPICAL
Application: A216484 | Product #001 | TE Code: AB
Applicant: ALKEM LABORATORIES LTD
Approved: Oct 6, 2025 | RLD: No | RS: No | Type: RX